FAERS Safety Report 13434100 (Version 1)
Quarter: 2017Q2

REPORT INFORMATION
  Report Type: Spontaneous
  Country: US (occurrence: US)
  Receive Date: 20170413
  Receipt Date: 20170413
  Transmission Date: 20170830
  Serious: No
  Sender: FDA-Public Use
  Company Number: US-FERRINGPH-2016FE01586

PATIENT
  Age: 73 Year
  Sex: Male
  Weight: 70.3 kg

DRUGS (14)
  1. METOPROLOL. [Concomitant]
     Active Substance: METOPROLOL
  2. WARFARIN [Concomitant]
     Active Substance: WARFARIN
  3. LUTEIN                             /01638501/ [Concomitant]
     Active Substance: LUTEIN
  4. CASODEX [Concomitant]
     Active Substance: BICALUTAMIDE
  5. METFORMIN [Concomitant]
     Active Substance: METFORMIN HYDROCHLORIDE
  6. PROBIOTICS NOS [Concomitant]
     Active Substance: PROBIOTICS NOS
  7. VITAMIN C [Concomitant]
     Active Substance: ASCORBIC ACID
  8. VITAMIN D [Concomitant]
     Active Substance: CHOLECALCIFEROL
  9. FIRMAGON [Suspect]
     Active Substance: DEGARELIX ACETATE
     Indication: PROSTATE CANCER
     Dosage: 240 MG, ONCE/SINGLE
     Route: 058
     Dates: start: 20160225, end: 20160225
  10. COENZYME Q10 [Concomitant]
     Active Substance: UBIDECARENONE
  11. CALCIUM [Concomitant]
     Active Substance: CALCIUM
  12. LOSARTAN. [Concomitant]
     Active Substance: LOSARTAN
  13. NATEGLINIDE. [Concomitant]
     Active Substance: NATEGLINIDE
  14. PROLIA [Concomitant]
     Active Substance: DENOSUMAB

REACTIONS (4)
  - Rash pruritic [Not Recovered/Not Resolved]
  - Rash erythematous [Not Recovered/Not Resolved]
  - Pain [Recovered/Resolved]
  - Rash papular [Not Recovered/Not Resolved]

NARRATIVE: CASE EVENT DATE: 20160225
